FAERS Safety Report 9621360 (Version 2)
Quarter: 2013Q4

REPORT INFORMATION
  Report Type: Spontaneous
  Country: US (occurrence: US)
  Receive Date: 20131015
  Receipt Date: 20131120
  Transmission Date: 20140711
  Serious: Yes (Other)
  Sender: FDA-Public Use
  Company Number: US-PFIZER INC-2013288909

PATIENT
  Age: 78 Year
  Sex: Male
  Weight: 127 kg

DRUGS (2)
  1. LATANOPROST [Suspect]
     Indication: GLAUCOMA
     Dosage: 1 GTT, 1X/DAY
     Route: 047
     Dates: start: 2011
  2. LOSARTAN POTASSIUM W/HYDROCHLOROTHIAZIDE [Concomitant]
     Indication: HYPERTENSION
     Dosage: LOSARTAN POTASSIUM 50 MG/HYDROCHLOROTHIAZIDE 12.5, 1X/DAY

REACTIONS (3)
  - Incorrect dose administered [Unknown]
  - Intraocular pressure increased [Unknown]
  - Product quality issue [Unknown]
